FAERS Safety Report 10243259 (Version 1)
Quarter: 2014Q2

REPORT INFORMATION
  Report Type: Spontaneous
  Country: US (occurrence: None)
  Receive Date: 20140616
  Receipt Date: 20140616
  Transmission Date: 20141212
  Serious: No
  Sender: FDA-Public Use
  Company Number: None

PATIENT
  Age: 54 Year
  Sex: Female
  Weight: 68.04 kg

DRUGS (2)
  1. AMITIZA [Suspect]
     Indication: CONSTIPATION
     Dosage: 1 PILL, TWICE DAILY, TAKEN BY MOUTH
     Route: 048
  2. AMITIZA [Suspect]
     Indication: ABDOMINAL DISTENSION
     Dosage: 1 PILL, TWICE DAILY, TAKEN BY MOUTH
     Route: 048

REACTIONS (1)
  - Alopecia [None]
